FAERS Safety Report 8379170-9 (Version None)
Quarter: 2012Q1

REPORT INFORMATION
  Report Type: 
  Country: None (occurrence: None)
  Receive Date: 20120323
  Receipt Date: 20110315
  Transmission Date: 20120608
  Serious: Yes (Other)
  Sender: FDA-Public Use
  Company Number: 163-21880-11032185

PATIENT
  Age: 55 Year
  Sex: Female
  Weight: 72.5755 kg

DRUGS (13)
  1. CALCIUM CARBONATE [Concomitant]
  2. NEXIUM [Concomitant]
  3. FUROSEMIDE [Concomitant]
  4. ALLEGRA D (ALLEGRA-D - SLOW RELEASE) [Concomitant]
  5. MULTIVITAMIN [Concomitant]
  6. ACETAMINOPHEN [Concomitant]
  7. FISH OIL (FISH OIL) [Concomitant]
  8. ONDANSETRON [Concomitant]
  9. DECADRON [Concomitant]
  10. FLUCONAZOLE [Concomitant]
  11. REVLIMID [Suspect]
     Indication: MULTIPLE MYELOMA
     Dosage: 10 MG, X 21 DAYS, PO
     Route: 048
     Dates: start: 20100426
  12. ACYCLOVIR [Concomitant]
  13. VELCADE [Concomitant]

REACTIONS (3)
  - PRODUCTIVE COUGH [None]
  - UPPER RESPIRATORY TRACT INFECTION [None]
  - SINUS CONGESTION [None]
